FAERS Safety Report 10537471 (Version 3)
Quarter: 2014Q4

REPORT INFORMATION
  Report Type: Spontaneous
  Country: US (occurrence: None)
  Receive Date: 20141021
  Receipt Date: 20141229
  Transmission Date: 20150529
  Serious: Yes (Death, Hospitalization, Other)
  Sender: FDA-Public Use
  Company Number: 2014-US-013216

PATIENT
  Age: 81 Year
  Sex: Female

DRUGS (6)
  1. SUPPLEMENTAL IRON (FERROUS FUMARATE) [Concomitant]
  2. OXYGEN (OXYGEN) [Concomitant]
     Active Substance: OXYGEN
  3. XYREM [Suspect]
     Active Substance: SODIUM OXYBATE
     Indication: CATAPLEXY
     Route: 048
     Dates: start: 200310
  4. COUMADIN [Concomitant]
     Active Substance: WARFARIN SODIUM
  5. VITAMIN B12 (HYDROXOCOBALAMIN) [Concomitant]
  6. XYREM [Suspect]
     Active Substance: SODIUM OXYBATE
     Indication: NARCOLEPSY
     Route: 048
     Dates: start: 200310

REACTIONS (12)
  - Death [None]
  - Tricuspid valve incompetence [None]
  - Cardiac failure congestive [None]
  - Acute myocardial infarction [None]
  - Cellulitis [None]
  - Acute kidney injury [None]
  - Asthenia [None]
  - Hospitalisation [None]
  - Dehydration [None]
  - Fall [None]
  - Iron deficiency anaemia [None]
  - Pulmonary hypertension [None]

NARRATIVE: CASE EVENT DATE: 2014
